FAERS Safety Report 8381701-X (Version None)
Quarter: 2012Q2

REPORT INFORMATION
  Report Type: 
  Country: None (occurrence: None)
  Receive Date: 20120524
  Receipt Date: 20120514
  Transmission Date: 20120825
  Serious: Yes (Hospitalization, Other)
  Sender: FDA-Public Use
  Company Number: DE-BIOGENIDEC-2012BI017049

PATIENT
  Age: 56 Year
  Sex: Female

DRUGS (9)
  1. MADOPAR [Concomitant]
     Dates: start: 20111130
  2. SULPIRID [Concomitant]
     Dates: start: 20110808
  3. ASPIRIN [Concomitant]
     Indication: ISCHAEMIA
     Dates: start: 20111130
  4. TYSABRI [Suspect]
     Indication: RELAPSING-REMITTING MULTIPLE SCLEROSIS
     Route: 042
     Dates: start: 20090805
  5. METHIZOL 5 [Concomitant]
     Indication: HYPOTHYROIDISM
     Dates: start: 20090909
  6. MADOPAR [Concomitant]
     Indication: TREMOR
     Dates: start: 20110701, end: 20111130
  7. KEPPRA [Concomitant]
     Indication: EPILEPSY
     Dates: start: 20110912
  8. ZOLPIDEM TARTRATE [Concomitant]
     Indication: INSOMNIA
     Dates: start: 20110808
  9. VALDOXAN [Concomitant]
     Indication: DEPRESSION
     Dates: start: 20110808

REACTIONS (1)
  - ANAEMIA [None]
